FAERS Safety Report 6726143-5 (Version None)
Quarter: 2010Q2

REPORT INFORMATION
  Report Type: 
  Country: None (occurrence: None)
  Receive Date: 20100514
  Receipt Date: 20100505
  Transmission Date: 20101027
  Serious: Yes (Other)
  Sender: FDA-Public Use
  Company Number: AU-JNJCH-2010011144

PATIENT
  Age: 55 Year
  Sex: Female

DRUGS (3)
  1. NICORETTE PATCH STEP 1 15MG [Suspect]
     Indication: SMOKING CESSATION THERAPY
     Dosage: TEXT:ONE PATCH TWICE
     Route: 062
     Dates: start: 20100501, end: 20100502
  2. KEPPRA [Concomitant]
     Indication: EPILEPSY
     Dosage: TEXT:UNSPECIFIED
     Route: 065
  3. RIVOTRIL [Concomitant]
     Indication: EPILEPSY
     Dosage: TEXT:UNSPECIFIED
     Route: 065

REACTIONS (4)
  - COLD SWEAT [None]
  - DIARRHOEA [None]
  - DIZZINESS [None]
  - EPILEPSY [None]
